FAERS Safety Report 23062994 (Version 2)
Quarter: 2023Q4

REPORT INFORMATION
  Report Type: Other
  Country: US (occurrence: None)
  Receive Date: 20231013
  Receipt Date: 20231017
  Transmission Date: 20240109
  Serious: Yes (Other)
  Sender: FDA-Public Use
  Company Number: US-ROCHE-3437637

PATIENT
  Age: 70 Year
  Sex: Male

DRUGS (9)
  1. VEMURAFENIB [Suspect]
     Active Substance: VEMURAFENIB
     Indication: BRAF gene mutation
     Route: 065
  2. VEMURAFENIB [Suspect]
     Active Substance: VEMURAFENIB
     Indication: Metastatic malignant melanoma
  3. COBIMETINIB [Suspect]
     Active Substance: COBIMETINIB
     Indication: BRAF gene mutation
     Route: 065
  4. COBIMETINIB [Suspect]
     Active Substance: COBIMETINIB
     Indication: Metastatic malignant melanoma
  5. DABRAFENIB [Concomitant]
     Active Substance: DABRAFENIB
     Indication: BRAF gene mutation
  6. DABRAFENIB [Concomitant]
     Active Substance: DABRAFENIB
     Indication: Metastatic malignant melanoma
  7. TRAMETINIB [Concomitant]
     Active Substance: TRAMETINIB
     Indication: Metastatic malignant melanoma
  8. TRAMETINIB [Concomitant]
     Active Substance: TRAMETINIB
     Indication: BRAF gene mutation
  9. NIVOLUMAB [Concomitant]
     Active Substance: NIVOLUMAB
     Indication: Metastatic malignant melanoma

REACTIONS (2)
  - Disease progression [Recovered/Resolved]
  - Drug intolerance [Unknown]
